FAERS Safety Report 13280771 (Version 1)
Quarter: 2017Q1

REPORT INFORMATION
  Report Type: Report from Study
  Country: DE (occurrence: DE)
  Receive Date: 20170301
  Receipt Date: 20170301
  Transmission Date: 20170428
  Serious: Yes (Life-Threatening, Other)
  Sender: FDA-Public Use
  Company Number: DE-SUN PHARMACEUTICAL INDUSTRIES LTD-2017R1-134595

PATIENT
  Sex: Female

DRUGS (1)
  1. QUINAPRIL. [Suspect]
     Active Substance: QUINAPRIL
     Indication: HYPERTENSION
     Route: 065

REACTIONS (5)
  - Hereditary angioedema [Recovered/Resolved]
  - Swollen tongue [Recovered/Resolved]
  - Skin swelling [Recovered/Resolved]
  - Condition aggravated [Recovered/Resolved]
  - Upper airway obstruction [Recovered/Resolved]
